FAERS Safety Report 5179954-4 (Version None)
Quarter: 2006Q4

REPORT INFORMATION
  Report Type: 
  Country: None (occurrence: None)
  Receive Date: 20061212
  Receipt Date: 20061128
  Transmission Date: 20070319
  Serious: Yes (Other)
  Sender: FDA-Public Use
  Company Number: S06-FRA-05124-01

PATIENT
  Age: 41 Year
  Sex: Female

DRUGS (3)
  1. SEROPLEX (ESCITALOPRAM) [Suspect]
     Dosage: 10 MG QD PO
     Route: 048
  2. ATARAX [Concomitant]
  3. MAGNESIUM [Concomitant]

REACTIONS (1)
  - GINGIVITIS ULCERATIVE [None]
